FAERS Safety Report 6476732-0 (Version None)
Quarter: 2009Q4

REPORT INFORMATION
  Report Type: 
  Country: None (occurrence: None)
  Receive Date: 20091207
  Receipt Date: 20091125
  Transmission Date: 20100525
  Serious: Yes (Hospitalization)
  Sender: FDA-Public Use
  Company Number: PHHY2009DE48785

PATIENT
  Age: 40 Year
  Sex: Male
  Weight: 105 kg

DRUGS (7)
  1. PANTOZOL [Suspect]
     Indication: REFLUX OESOPHAGITIS
     Dosage: 40 MG, ONCE DAILY
     Route: 048
     Dates: start: 20060101
  2. EXFORGE [Suspect]
     Indication: HYPERTENSION
     Dosage: 1 DF, QD
     Route: 048
     Dates: start: 20090401
  3. TERBINAFINE HCL [Suspect]
     Indication: FUNGAL INFECTION
     Dosage: UNK
     Route: 048
     Dates: start: 20080101
  4. TERBINAFINE HCL [Suspect]
     Dosage: 250 MG, QD
     Route: 048
     Dates: start: 20090701, end: 20090720
  5. DOXYCYCLIN [Suspect]
     Indication: LYME DISEASE
     Dosage: 200 MG, QD
     Route: 048
     Dates: start: 20090727, end: 20090819
  6. CEFUROXIME [Suspect]
     Indication: LYME DISEASE
     Dosage: 500 MG, BID
     Route: 048
     Dates: start: 20090812, end: 20090823
  7. PENICILLIN VK [Suspect]
     Indication: LYME DISEASE
     Dosage: UNK
     Route: 048
     Dates: start: 20090720, end: 20090726

REACTIONS (12)
  - ASTHENIA [None]
  - DRUG TOXICITY [None]
  - FIBROSIS [None]
  - GENERAL PHYSICAL HEALTH DETERIORATION [None]
  - HEPATIC ENZYME INCREASED [None]
  - HEPATIC STEATOSIS [None]
  - HEPATOCELLULAR INJURY [None]
  - HEPATOMEGALY [None]
  - INFLAMMATION [None]
  - PORTAL HYPERTENSIVE GASTROPATHY [None]
  - SERUM FERRITIN INCREASED [None]
  - TREMOR [None]
